FAERS Safety Report 13689309 (Version 1)
Quarter: 2017Q2

REPORT INFORMATION
  Report Type: Spontaneous
  Country: JP (occurrence: JP)
  Receive Date: 20170626
  Receipt Date: 20170626
  Transmission Date: 20170830
  Serious: Yes (Hospitalization, Other)
  Sender: FDA-Public Use
  Company Number: JP-GLAXOSMITHKLINE-JP2017JPN082894

PATIENT
  Age: 71 Year
  Sex: Male
  Weight: 53 kg

DRUGS (14)
  1. ZOPICLONE [Concomitant]
     Active Substance: ZOPICLONE
     Dosage: UNK
  2. VALACICLOVIR HYDROCHLORIDE [Suspect]
     Active Substance: VALACYCLOVIR HYDROCHLORIDE
     Indication: HERPES ZOSTER
     Dosage: 1000 MG, TID
     Route: 048
     Dates: start: 20170524, end: 20170528
  3. MOSAPRIDE CITRATE HYDRATE [Concomitant]
     Active Substance: MOSAPRIDE CITRATE DIHYDRATE
     Dosage: UNK
  4. FEBURIC [Concomitant]
     Active Substance: FEBUXOSTAT
     Dosage: UNK
  5. BAYASPIRIN [Concomitant]
     Active Substance: ASPIRIN
     Dosage: UNK
  6. METFORMIN HYDROCHLORIDE. [Concomitant]
     Active Substance: METFORMIN HYDROCHLORIDE
     Dosage: UNK
  7. ETIZOLAM TABLETS [Concomitant]
     Dosage: UNK
  8. SENNOSIDE [Concomitant]
     Active Substance: SENNOSIDES
     Dosage: UNK
  9. LANSOPRAZOLE-OD [Concomitant]
     Active Substance: LANSOPRAZOLE
     Dosage: UNK
  10. AMLODIPINE [Concomitant]
     Active Substance: AMLODIPINE BESYLATE
     Dosage: UNK
  11. PAROXETINE. [Concomitant]
     Active Substance: PAROXETINE
     Dosage: UNK
  12. NOVORAPID INJECTION [Concomitant]
     Dosage: UNK
  13. ARASENA-A [Concomitant]
     Active Substance: VIDARABINE
     Dosage: UNK
  14. TRESIBA [Concomitant]
     Active Substance: INSULIN DEGLUDEC
     Dosage: UNK

REACTIONS (10)
  - Acute kidney injury [Recovered/Resolved]
  - Abasia [Unknown]
  - Anuria [Recovering/Resolving]
  - Feeding disorder [Unknown]
  - Haematuria [Recovering/Resolving]
  - Renal disorder [Unknown]
  - Malaise [Unknown]
  - Decreased appetite [Unknown]
  - Eyelid oedema [Unknown]
  - Vertigo [Unknown]

NARRATIVE: CASE EVENT DATE: 20170524
